FAERS Safety Report 6620163-7 (Version None)
Quarter: 2010Q1

REPORT INFORMATION
  Report Type: 
  Country: None (occurrence: None)
  Receive Date: 20100308
  Receipt Date: 20100308
  Transmission Date: 20100710
  Serious: No
  Sender: FDA-Public Use
  Company Number: None

PATIENT
  Age: 13 Year
  Sex: Male
  Weight: 71.7 kg

DRUGS (2)
  1. RISPERIDONE [Suspect]
     Indication: AUTISM
     Dosage: 2MG QAM PO
     Route: 048
     Dates: start: 20090801, end: 20100301
  2. RISPERIDONE [Suspect]
     Indication: AUTISM
     Dosage: 2MG QAM PO
     Route: 048

REACTIONS (2)
  - DRUG INEFFECTIVE [None]
  - PRODUCT SUBSTITUTION ISSUE [None]
